FAERS Safety Report 25682060 (Version 1)
Quarter: 2025Q3

REPORT INFORMATION
  Report Type: Spontaneous
  Country: US (occurrence: US)
  Receive Date: 20250814
  Receipt Date: 20250814
  Transmission Date: 20251020
  Serious: No
  Sender: INCYTE
  Company Number: US-INCYTE CORPORATION-2025IN008712

PATIENT
  Age: 79 Year

DRUGS (1)
  1. JAKAFI [Suspect]
     Active Substance: RUXOLITINIB
     Indication: Product used for unknown indication

REACTIONS (2)
  - Fatigue [Unknown]
  - Depression [Unknown]
